FAERS Safety Report 8849488 (Version 1)
Quarter: 2012Q4

REPORT INFORMATION
  Report Type: 
  Country: US (occurrence: US)
  Receive Date: 20121019
  Receipt Date: 20121019
  Transmission Date: 20130627
  Serious: Yes (Hospitalization, Other)
  Sender: FDA-Public Use
  Company Number: PHHY2012US090382

PATIENT
  Age: 20 Year
  Sex: Male

DRUGS (3)
  1. LEVETIRACETAM [Suspect]
  2. DOXEPIN [Suspect]
  3. CITALOPRAM [Suspect]

REACTIONS (12)
  - Cardiac arrest [Recovered/Resolved]
  - Electrocardiogram QRS complex abnormal [Recovered/Resolved]
  - Blood triglycerides increased [Recovered/Resolved]
  - Blood bilirubin increased [Recovered/Resolved]
  - Pancreatitis [Recovered/Resolved]
  - Unresponsive to stimuli [Recovered/Resolved]
  - Grand mal convulsion [Recovered/Resolved]
  - Bradycardia [Recovered/Resolved]
  - Drug level increased [Recovered/Resolved]
  - Vomiting [Recovered/Resolved]
  - Abdominal pain upper [Recovered/Resolved]
  - Overdose [Recovered/Resolved]
